FAERS Safety Report 8623296-9 (Version None)
Quarter: 2012Q3

REPORT INFORMATION
  Report Type: 
  Country: None (occurrence: None)
  Receive Date: 20120827
  Receipt Date: 20120816
  Transmission Date: 20120928
  Serious: Yes (Other)
  Sender: FDA-Public Use
  Company Number: US-ELI_LILLY_AND_COMPANY-US201208005926

PATIENT
  Age: 45 Year
  Sex: Female

DRUGS (3)
  1. ORAL CONTRACEPTIVE NOS [Concomitant]
     Indication: CONTRACEPTION
  2. CYMBALTA [Suspect]
     Dosage: 60 MG, UNKNOWN
     Dates: start: 20111101
  3. MULTIVITAMIN [Concomitant]

REACTIONS (1)
  - JAUNDICE [None]
